FAERS Safety Report 17753225 (Version 1)
Quarter: 2020Q2

REPORT INFORMATION
  Report Type: Spontaneous
  Country: IT (occurrence: IT)
  Receive Date: 20200506
  Receipt Date: 20200506
  Transmission Date: 20200714
  Serious: Yes (Hospitalization)
  Sender: FDA-Public Use
  Company Number: NVSC2020IT120697

PATIENT
  Age: 67 Year
  Sex: Female

DRUGS (2)
  1. OLANZAPINE. [Suspect]
     Active Substance: OLANZAPINE
     Indication: DRUG ABUSE
     Dosage: 1050 MG, TOTAL
     Route: 048
     Dates: start: 20190724, end: 20190724
  2. DELORAZEPAM [Suspect]
     Active Substance: DELORAZEPAM
     Indication: DRUG ABUSE
     Dosage: 20 MG, TOTAL
     Route: 048
     Dates: start: 20190724, end: 20190724

REACTIONS (3)
  - Loss of consciousness [Recovering/Resolving]
  - Mydriasis [Recovering/Resolving]
  - Substance abuse [Recovering/Resolving]

NARRATIVE: CASE EVENT DATE: 20190724
